FAERS Safety Report 5910881-8 (Version None)
Quarter: 2008Q4

REPORT INFORMATION
  Report Type: 
  Country: None (occurrence: None)
  Receive Date: 20081007
  Receipt Date: 20080617
  Transmission Date: 20090506
  Serious: Yes (Other)
  Sender: FDA-Public Use
  Company Number: US-ASTRAZENECA-2008UW12213

PATIENT
  Age: 71 Year
  Sex: Female

DRUGS (3)
  1. ARIMIDEX [Suspect]
     Indication: BREAST CANCER
     Route: 048
     Dates: start: 20050101
  2. CHOLESTEROMINE [Concomitant]
  3. SYNTHROID [Concomitant]

REACTIONS (3)
  - BONE DENSITY DECREASED [None]
  - RESORPTION BONE INCREASED [None]
  - VITAMIN D DECREASED [None]
